FAERS Safety Report 8464828-3 (Version None)
Quarter: 2012Q2

REPORT INFORMATION
  Report Type: 
  Country: None (occurrence: None)
  Receive Date: 20120626
  Receipt Date: 20120618
  Transmission Date: 20120825
  Serious: Yes (Hospitalization)
  Sender: FDA-Public Use
  Company Number: CN-SANOFI-AVENTIS-2012SA039704

PATIENT
  Age: 58 Year
  Sex: Male
  Weight: 66 kg

DRUGS (5)
  1. ATORVASTATIN CALCIUM [Concomitant]
  2. CALCIUM DOBESILATE [Concomitant]
  3. ASPIRIN [Concomitant]
     Indication: MYOCARDIAL ISCHAEMIA
     Dates: start: 20080101
  4. HUMALOG [Suspect]
     Indication: TYPE 2 DIABETES MELLITUS
     Dosage: DOSE:8 UNIT(S)
     Route: 058
     Dates: start: 20111210
  5. INSULIN GLARGINE [Suspect]
     Indication: TYPE 2 DIABETES MELLITUS
     Dosage: DOSE:24 UNIT(S)
     Route: 058
     Dates: start: 20111210

REACTIONS (1)
  - DIZZINESS [None]
